FAERS Safety Report 16777123 (Version 2)
Quarter: 2019Q3

REPORT INFORMATION
  Report Type: Report from Study
  Country: US (occurrence: US)
  Receive Date: 20190905
  Receipt Date: 20190906
  Transmission Date: 20191005
  Serious: No
  Sender: FDA-Public Use
  Company Number: US-EMD SERONO-9097476

PATIENT
  Age: 32 Year
  Sex: Female

DRUGS (2)
  1. MAVENCLAD [Suspect]
     Active Substance: CLADRIBINE
     Indication: MULTIPLE SCLEROSIS
     Dosage: FIRST WEEK THERAPY: TWO TABLETS (EACH OF 10 MG) ON DAYS 1 AND 2 AND ONE TABLET ON DAYS 3 TO 5.
     Route: 048
     Dates: start: 20190503, end: 20190507
  2. MAVENCLAD [Suspect]
     Active Substance: CLADRIBINE
     Dosage: SECOND WEEK THERAPY: PRESCRIBED TO TAKE TWO TABLETS (EACH OF 10 MG) ON DAYS 1 AND 2 AND ONE TABLET O
     Route: 048
     Dates: start: 20190622

REACTIONS (8)
  - Chills [Unknown]
  - Dental care [Unknown]
  - Headache [Unknown]
  - Tooth infection [Unknown]
  - Post procedural contusion [Unknown]
  - Feeling cold [Unknown]
  - Pain [Unknown]
  - Procedural pain [Unknown]

NARRATIVE: CASE EVENT DATE: 201906
